FAERS Safety Report 10345062 (Version 2)
Quarter: 2014Q3

REPORT INFORMATION
  Report Type: Spontaneous
  Country: US (occurrence: None)
  Receive Date: 20140724
  Receipt Date: 20140812
  Transmission Date: 20150326
  Serious: Yes (Hospitalization, Other)
  Sender: FDA-Public Use
  Company Number: QSC-2014-0451

PATIENT
  Age: 58 Year
  Sex: Male

DRUGS (1)
  1. H.P. ACTHAR [Suspect]
     Active Substance: CORTICOTROPIN
     Indication: RENAL FAILURE CHRONIC
     Route: 058
     Dates: start: 20140203, end: 201405

REACTIONS (6)
  - Ventricular extrasystoles [None]
  - Coronary arterial stent insertion [None]
  - Protein total increased [None]
  - Drug ineffective [None]
  - Heart rate irregular [None]
  - Bradycardia [None]

NARRATIVE: CASE EVENT DATE: 20140422
